FAERS Safety Report 5393860-1 (Version None)
Quarter: 2007Q3

REPORT INFORMATION
  Report Type: 
  Country: None (occurrence: None)
  Receive Date: 20070723
  Receipt Date: 20070716
  Transmission Date: 20080115
  Serious: Yes (Life-Threatening)
  Sender: FDA-Public Use
  Company Number: B0473515A

PATIENT
  Age: 68 Year
  Sex: Female
  Weight: 61 kg

DRUGS (16)
  1. AUGMENTIN '125' [Suspect]
     Indication: LUNG INFECTION
     Route: 048
     Dates: start: 20070430, end: 20070506
  2. NOVATREX [Suspect]
     Route: 048
     Dates: end: 20070509
  3. BREXIN [Suspect]
     Dosage: 800MG PER DAY
     Route: 048
     Dates: start: 20070403, end: 20070509
  4. ROCEPHIN [Suspect]
     Indication: LUNG INFECTION
     Dosage: 1G PER DAY
     Route: 030
     Dates: start: 20070505, end: 20070509
  5. TAVANIC [Suspect]
     Indication: LUNG INFECTION
     Dosage: 500MG PER DAY
     Route: 048
     Dates: start: 20070505, end: 20070509
  6. KETEK [Suspect]
     Indication: LUNG INFECTION
     Dosage: 800MG PER DAY
     Route: 048
     Dates: start: 20070419, end: 20070424
  7. AMOXICILLIN [Suspect]
     Indication: LUNG INFECTION
     Dosage: 2G PER DAY
     Dates: start: 20070410, end: 20070417
  8. TAREG [Concomitant]
     Dosage: 160MG PER DAY
  9. SYMBICORT [Concomitant]
  10. BRONCHODUAL [Concomitant]
  11. ALPRAZOLAM [Concomitant]
  12. EFFEXOR [Concomitant]
  13. DIANTALVIC [Concomitant]
  14. NEURONTIN [Concomitant]
  15. OGAST [Concomitant]
     Dosage: 15MG PER DAY
  16. PULMICORT [Concomitant]

REACTIONS (5)
  - ASTHENIA [None]
  - PANCYTOPENIA [None]
  - PRODUCTIVE COUGH [None]
  - PYREXIA [None]
  - RENAL FAILURE CHRONIC [None]
